FAERS Safety Report 19007766 (Version 2)
Quarter: 2021Q1

REPORT INFORMATION
  Report Type: Report from Study
  Country: BR (occurrence: BR)
  Receive Date: 20210315
  Receipt Date: 20210315
  Transmission Date: 20210420
  Serious: Yes (Life-Threatening)
  Sender: FDA-Public Use
  Company Number: NVSC2021BR055830

PATIENT
  Age: 38 Year
  Sex: Male

DRUGS (2)
  1. COSENTYX [Suspect]
     Active Substance: SECUKINUMAB
     Indication: ANKYLOSING SPONDYLITIS
     Dosage: UNK
     Route: 065
     Dates: start: 20181221, end: 20201118
  2. SIMPONI [Concomitant]
     Active Substance: GOLIMUMAB
     Indication: ANKYLOSING SPONDYLITIS
     Dosage: UNK
     Route: 065
     Dates: end: 20210123

REACTIONS (5)
  - Depressed mood [Unknown]
  - Inflammation [Not Recovered/Not Resolved]
  - Oedema [Unknown]
  - General physical health deterioration [Unknown]
  - Arthralgia [Unknown]

NARRATIVE: CASE EVENT DATE: 202101
